FAERS Safety Report 20541830 (Version 1)
Quarter: 2022Q1

REPORT INFORMATION
  Report Type: Spontaneous
  Country: US (occurrence: US)
  Receive Date: 20220302
  Receipt Date: 20220302
  Transmission Date: 20220423
  Serious: No
  Sender: FDA-Public Use
  Company Number: US-NOVARTISTESTPH-NVSC2022US047742

PATIENT
  Sex: Female

DRUGS (2)
  1. GENTAMICIN SULFATE [Suspect]
     Active Substance: GENTAMICIN SULFATE
     Indication: Staphylococcal infection
     Dosage: 3 DOSAGE FORM, TID (6 DROPS, BOTH NOSTRILS)
     Route: 045
     Dates: start: 20220224
  2. GENTAMICIN SULFATE [Concomitant]
     Active Substance: GENTAMICIN SULFATE
     Indication: Infection
     Dosage: UNK
     Route: 065
     Dates: start: 20220223

REACTIONS (3)
  - Chest discomfort [Unknown]
  - Abdominal discomfort [Unknown]
  - Malaise [Unknown]
